FAERS Safety Report 5001264-6 (Version None)
Quarter: 2006Q2

REPORT INFORMATION
  Report Type: 
  Country: None (occurrence: None)
  Receive Date: 20060512
  Receipt Date: 20060503
  Transmission Date: 20061013
  Serious: Yes (Hospitalization)
  Sender: FDA-Public Use
  Company Number: FR-ABBOTT-06P-056-0332366-00

PATIENT
  Age: 61 Year
  Sex: Male

DRUGS (16)
  1. DEPAKOTE [Suspect]
     Indication: PSYCHOTIC DISORDER
     Route: 048
     Dates: start: 20060120, end: 20060228
  2. DEPAKOTE [Suspect]
     Indication: PERSONALITY DISORDER
     Route: 048
     Dates: end: 20060119
  3. LAMOTRIGINE [Interacting]
     Indication: PSYCHOTIC DISORDER
     Route: 048
     Dates: start: 20060215, end: 20060228
  4. LAMOTRIGINE [Interacting]
     Indication: PERSONALITY DISORDER
     Route: 048
     Dates: start: 20060201, end: 20060205
  5. LAMOTRIGINE [Interacting]
     Route: 048
     Dates: start: 20060206, end: 20060214
  6. BECLOMETHASONE DIPROPIONATE [Concomitant]
     Indication: BRONCHITIS
     Route: 055
     Dates: start: 20060222, end: 20060228
  7. FENSPIRIDE HYDROCHLORIDE [Concomitant]
     Indication: BRONCHITIS
     Route: 048
     Dates: start: 20060222, end: 20060228
  8. CLAVULIN [Concomitant]
     Indication: BRONCHITIS
     Route: 048
     Dates: start: 20060222, end: 20060228
  9. PREDNISOLONE SODIUM PHOSPHATE [Concomitant]
     Indication: BRONCHITIS
     Route: 048
     Dates: start: 20060222
  10. ZOPICLONE [Concomitant]
     Indication: DRUG USE FOR UNKNOWN INDICATION
     Route: 048
     Dates: start: 20060301
  11. BIPERIDEN HYDROCHLORIDE TAB [Concomitant]
     Indication: DRUG USE FOR UNKNOWN INDICATION
     Route: 048
     Dates: start: 20060301
  12. CLOBAZAM [Concomitant]
     Indication: DRUG USE FOR UNKNOWN INDICATION
     Route: 048
     Dates: start: 20060301
  13. CLONAZEPAM [Concomitant]
     Indication: DRUG USE FOR UNKNOWN INDICATION
     Route: 048
     Dates: start: 20060301
  14. CYAMEMAZINE [Concomitant]
     Indication: DRUG USE FOR UNKNOWN INDICATION
     Route: 048
     Dates: start: 20060301
  15. FOLIC ACID [Concomitant]
     Indication: DRUG USE FOR UNKNOWN INDICATION
     Route: 048
     Dates: start: 20060301
  16. VITAMIN B1 AND B6 [Concomitant]
     Indication: DRUG USE FOR UNKNOWN INDICATION
     Route: 048
     Dates: start: 20060301

REACTIONS (12)
  - ALANINE AMINOTRANSFERASE INCREASED [None]
  - ASPARTATE AMINOTRANSFERASE INCREASED [None]
  - BLOOD CREATINE PHOSPHOKINASE INCREASED [None]
  - BLOOD CREATININE INCREASED [None]
  - BLOOD LACTATE DEHYDROGENASE INCREASED [None]
  - C-REACTIVE PROTEIN INCREASED [None]
  - DIARRHOEA [None]
  - DRUG INTERACTION [None]
  - DRUG RASH WITH EOSINOPHILIA AND SYSTEMIC SYMPTOMS [None]
  - INFLAMMATION [None]
  - PLEURAL EFFUSION [None]
  - PYREXIA [None]
